FAERS Safety Report 8951186 (Version 1)
Quarter: 2012Q4

REPORT INFORMATION
  Report Type: Spontaneous
  Country: US (occurrence: None)
  Receive Date: 20121106
  Receipt Date: 20121106
  Transmission Date: 20130627
  Serious: Yes (Other)
  Sender: FDA-Public Use
  Company Number: 2012033768

PATIENT
  Age: 12 Year
  Sex: Female
  Weight: 59.88 kg

DRUGS (17)
  1. HIZENTRA [Suspect]
     Indication: HUMORAL IMMUNE DEFECT
     Dosage: (1 gm 5 ml vial; 35 ml in 3 sites over 1 hour 15 minutes)
     Route: 058
     Dates: start: 20121018, end: 20121018
  2. HIZENTRA [Suspect]
     Indication: HUMORAL IMMUNE DEFECT
     Dosage: (2 gm 10 ml vial 35 ml in 3 sites over 1 hour 15 minutes)
     Route: 058
     Dates: start: 20121018, end: 20121018
  3. HIZENTRA [Suspect]
     Indication: HUMORAL IMMUNE DEFECT
     Dosage: (4 gm 20 ml vial 35 ml in 3 sites over 1 hour 15 minutes)
     Route: 058
     Dates: start: 20121018, end: 20121018
  4. ZOFRAN (ONDANSETRON) [Concomitant]
  5. VERAMYST (FLUTICASONE) [Concomitant]
  6. MULTIVITAMIN (DAILY MULTIVITAMIN) [Concomitant]
  7. EPI-PEN (EPINEPHRINE) [Concomitant]
  8. IBUPROFEN (IBUPROFEN) [Concomitant]
  9. BACTROBAN (MUPIROCIN) [Concomitant]
  10. ADVAIR (SERETIDE /01420901/) [Concomitant]
  11. PROMETHAZINE-DM (PROMETHAZINE) [Concomitant]
  12. MIRALAX (MACROGOL) [Concomitant]
  13. AMITRIPTYLINE (AMITRIPTYLINE) [Concomitant]
  14. PHENERGAN (PROMETHAZINE) [Concomitant]
  15. CYPROHEPTADINE (CYPROHEPTADINE) [Concomitant]
  16. CHLORDIAZEPOXIDE (CHLORDIAZEPOXIDE) [Concomitant]
  17. ALBUTEROL (SALBUTAMOL) [Concomitant]

REACTIONS (2)
  - Deafness [None]
  - Ear infection [None]
